FAERS Safety Report 9020295 (Version 1)
Quarter: 2013Q1

REPORT INFORMATION
  Report Type: Spontaneous
  Country: US (occurrence: US)
  Receive Date: 20130119
  Receipt Date: 20130119
  Transmission Date: 20140127
  Serious: No
  Sender: FDA-Public Use
  Company Number: US-ALLERGAN-1209353US

PATIENT
  Age: 32 Year
  Sex: Female

DRUGS (4)
  1. BOTOX? [Suspect]
     Indication: MIGRAINE
     Dosage: UNK
     Route: 030
     Dates: start: 20120620, end: 20120620
  2. ZONEGRAN [Concomitant]
     Indication: MIGRAINE PROPHYLAXIS
     Dosage: 100 MG, BID
     Route: 048
  3. PROPRANOLOL [Concomitant]
     Indication: MIGRAINE PROPHYLAXIS
     Dosage: 60 MG, TID
     Route: 048
  4. PRILOSEC                           /00661201/ [Concomitant]
     Indication: GASTROOESOPHAGEAL REFLUX DISEASE
     Dosage: 20 MG, QD

REACTIONS (4)
  - Migraine [Not Recovered/Not Resolved]
  - Injection site swelling [Unknown]
  - Injection site reaction [Not Recovered/Not Resolved]
  - Nausea [Not Recovered/Not Resolved]
